FAERS Safety Report 20249585 (Version 2)
Quarter: 2022Q3

REPORT INFORMATION
  Report Type: Spontaneous
  Country: US (occurrence: US)
  Receive Date: 20211229
  Receipt Date: 20220912
  Transmission Date: 20221027
  Serious: Yes (Other)
  Sender: FDA-Public Use
  Company Number: US-PFIZER INC-202101290113

PATIENT
  Age: 59 Year
  Sex: Female

DRUGS (1)
  1. IBRANCE [Suspect]
     Active Substance: PALBOCICLIB
     Dosage: 125 MG
     Dates: start: 20210907

REACTIONS (4)
  - Appendicitis [Unknown]
  - Oral pain [Unknown]
  - Flatulence [Unknown]
  - Epistaxis [Unknown]

NARRATIVE: CASE EVENT DATE: 20210901
